FAERS Safety Report 7842004-2 (Version None)
Quarter: 2011Q4

REPORT INFORMATION
  Report Type: 
  Country: None (occurrence: None)
  Receive Date: 20111025
  Receipt Date: 20111017
  Transmission Date: 20120403
  Serious: Yes (Hospitalization)
  Sender: FDA-Public Use
  Company Number: PHHY2011US59735

PATIENT
  Sex: Female
  Weight: 54.5 kg

DRUGS (12)
  1. EXJADE [Suspect]
     Indication: HAEMOCHROMATOSIS
     Dosage: 1000 MG, EVERY DAY
     Route: 048
     Dates: start: 20110614, end: 20110915
  2. PREDNISONE [Concomitant]
     Dosage: 05 MG, UNK
     Dates: start: 20110614
  3. ASPIRIN [Concomitant]
     Dosage: 81 MG, UNK
     Dates: start: 20110624
  4. BUFFERIN [Concomitant]
     Dosage: 325 MG, UNK
     Dates: start: 20110624
  5. VITAMIN D [Concomitant]
     Dosage: 2000 U, UNK
     Route: 048
     Dates: start: 20110614
  6. VITAMIN E [Concomitant]
     Dosage: 200 U, UNK
     Route: 048
     Dates: start: 20110614
  7. BENADRYL [Concomitant]
     Dosage: 25 MG, UNK
     Dates: start: 20110624
  8. ZETIA [Concomitant]
     Dosage: 10 MG, UNK
     Dates: start: 20110614
  9. EXJADE [Suspect]
     Indication: IRON OVERLOAD
  10. DIOVAN [Concomitant]
     Dosage: 80 MG, UNK
     Route: 048
     Dates: start: 20110614
  11. PROCRIT [Concomitant]
     Dosage: 2000 U/ML ONCE A WEEK
     Dates: start: 20110614
  12. SYNTHROID [Concomitant]
     Dosage: 88 UG, UNK
     Dates: start: 20110614

REACTIONS (5)
  - FATIGUE [None]
  - BACK PAIN [None]
  - WEIGHT DECREASED [None]
  - ABDOMINAL PAIN UPPER [None]
  - PAIN IN EXTREMITY [None]
